FAERS Safety Report 4955708-6 (Version None)
Quarter: 2006Q1

REPORT INFORMATION
  Report Type: 
  Country: None (occurrence: None)
  Receive Date: 20060328
  Receipt Date: 20060308
  Transmission Date: 20060701
  Serious: Yes (Death, Other)
  Sender: FDA-Public Use
  Company Number: US-AVENTIS-200612213US

PATIENT
  Sex: Female

DRUGS (3)
  1. KETEK [Suspect]
     Indication: PNEUMONIA
     Route: 048
     Dates: start: 20060224, end: 20060301
  2. DIOVAN [Concomitant]
     Dosage: DOSE: UNK
  3. ATENOLOL [Concomitant]
     Dosage: DOSE: UNK

REACTIONS (4)
  - ASTHENIA [None]
  - HEPATIC ENZYME INCREASED [None]
  - HEPATIC FAILURE [None]
  - RENAL FAILURE [None]
